FAERS Safety Report 16942308 (Version 4)
Quarter: 2025Q1

REPORT INFORMATION
  Report Type: Spontaneous
  Country: US (occurrence: US)
  Receive Date: 20191021
  Receipt Date: 20250124
  Transmission Date: 20250409
  Serious: No
  Sender: SANOFI AVENTIS
  Company Number: US-SA-2019SA290825

PATIENT
  Age: 4 Year
  Sex: Female
  Weight: 65.95 kg

DRUGS (13)
  1. DUPIXENT [Suspect]
     Active Substance: DUPILUMAB
     Indication: Dermatitis atopic
     Route: 058
     Dates: start: 201909, end: 201909
  2. DUPIXENT [Suspect]
     Active Substance: DUPILUMAB
     Dosage: 200 MG, QOW
     Route: 058
     Dates: start: 20191022
  3. DUPIXENT [Suspect]
     Active Substance: DUPILUMAB
     Dosage: 300 UNK
     Route: 058
  4. FLONASE ALLERGY RELIEF [Concomitant]
     Active Substance: FLUTICASONE PROPIONATE
  5. AQUAPHOR [WHITE SOFT PARAFFIN] [Concomitant]
  6. COCONUT OIL [Concomitant]
     Active Substance: COCONUT OIL
  7. ALBUTEROL SULFATE [Concomitant]
     Active Substance: ALBUTEROL SULFATE
  8. DIETARY SUPPLEMENT\PROBIOTICS [Concomitant]
     Active Substance: DIETARY SUPPLEMENT\PROBIOTICS NOS
  9. MELATONIN [Concomitant]
     Active Substance: MELATONIN
  10. VITAMIN D2 [Concomitant]
     Active Substance: ERGOCALCIFEROL
  11. MONTELUKAST SODIUM [Concomitant]
     Active Substance: MONTELUKAST SODIUM
  12. QVAR REDIHALER [Concomitant]
     Active Substance: BECLOMETHASONE DIPROPIONATE
  13. PREDNISONE [Concomitant]
     Active Substance: PREDNISONE

REACTIONS (2)
  - Illness [Unknown]
  - Off label use [Unknown]

NARRATIVE: CASE EVENT DATE: 20190901
